FAERS Safety Report 17859283 (Version 1)
Quarter: 2020Q2

REPORT INFORMATION
  Report Type: Spontaneous
  Country: US (occurrence: US)
  Receive Date: 20200603
  Receipt Date: 20200603
  Transmission Date: 20200714
  Serious: Yes (Hospitalization)
  Sender: FDA-Public Use
  Company Number: None

PATIENT
  Age: 42 Year
  Sex: Female

DRUGS (2)
  1. BACLOFEN CATHETER [DEVICE] [Suspect]
     Active Substance: DEVICE
  2. BACLOFEN. [Suspect]
     Active Substance: BACLOFEN

REACTIONS (3)
  - Device physical property issue [None]
  - Withdrawal syndrome [None]
  - Device delivery system issue [None]

NARRATIVE: CASE EVENT DATE: 20200602
